FAERS Safety Report 17530766 (Version 1)
Quarter: 2020Q1

REPORT INFORMATION
  Report Type: Spontaneous
  Country: FR (occurrence: FR)
  Receive Date: 20200311
  Receipt Date: 20200311
  Transmission Date: 20200409
  Serious: Yes (Hospitalization)
  Sender: FDA-Public Use
  Company Number: FR-MYLANLABS-2020M1026013

PATIENT
  Age: 69 Year
  Sex: Female

DRUGS (1)
  1. ZAMUDOL LP 150 MG, G?LULE ? LIB?RATION PROLONG?E [Suspect]
     Active Substance: TRAMADOL HYDROCHLORIDE
     Indication: PAIN
     Dosage: 150 MILLIGRAM, QD
     Route: 048
     Dates: end: 20200124

REACTIONS (2)
  - Hepatocellular injury [Recovering/Resolving]
  - Pancreatitis acute [Recovering/Resolving]

NARRATIVE: CASE EVENT DATE: 20200122
